FAERS Safety Report 18802491 (Version 1)
Quarter: 2021Q1

REPORT INFORMATION
  Report Type: Spontaneous
  Country: CN (occurrence: CN)
  Receive Date: 20210128
  Receipt Date: 20210128
  Transmission Date: 20210419
  Serious: Yes (Hospitalization, Disabling)
  Sender: FDA-Public Use
  Company Number: CN-BAUSCH-BL-2021-001866

PATIENT
  Age: 16 Year
  Sex: Female

DRUGS (2)
  1. HYDROCORTISONE. [Suspect]
     Active Substance: HYDROCORTISONE
     Indication: POSTOPERATIVE HYPOPITUITARISM
     Dosage: EVENING (PM)
     Route: 065
     Dates: start: 2018, end: 2018
  2. HYDROCORTISONE. [Suspect]
     Active Substance: HYDROCORTISONE
     Indication: POSTOPERATIVE HYPOPITUITARISM
     Dosage: MORNING (AM)
     Route: 065
     Dates: start: 2018, end: 2018

REACTIONS (1)
  - Osteonecrosis [Recovering/Resolving]

NARRATIVE: CASE EVENT DATE: 201805
